FAERS Safety Report 23408744 (Version 2)
Quarter: 2024Q1

REPORT INFORMATION
  Report Type: Spontaneous
  Country: HK (occurrence: None)
  Receive Date: 20240117
  Receipt Date: 20240211
  Transmission Date: 20240410
  Serious: Yes (Death, Hospitalization)
  Sender: FDA-Public Use
  Company Number: HK-ROCHE-3491100

PATIENT
  Age: 33 Year
  Sex: Male

DRUGS (1)
  1. EVRYSDI [Suspect]
     Active Substance: RISDIPLAM
     Indication: Spinal muscular atrophy
     Route: 065

REACTIONS (3)
  - Death [Fatal]
  - Dyspnoea [Unknown]
  - Influenza [Unknown]
